FAERS Safety Report 19173839 (Version 4)
Quarter: 2022Q4

REPORT INFORMATION
  Report Type: Spontaneous
  Country: JP (occurrence: JP)
  Receive Date: 20210423
  Receipt Date: 20221123
  Transmission Date: 20230112
  Serious: Yes (Death, Life-Threatening, Hospitalization, Disabling, Other)
  Sender: FDA-Public Use
  Company Number: JP-ASTELLAS-2021JP007432

PATIENT
  Age: 60 Year
  Sex: Male
  Weight: 51 kg

DRUGS (13)
  1. XOSPATA [Suspect]
     Active Substance: GILTERITINIB
     Indication: Acute myeloid leukaemia recurrent
     Route: 048
     Dates: start: 20201103, end: 20210322
  2. XOSPATA [Suspect]
     Active Substance: GILTERITINIB
     Route: 048
     Dates: start: 20210323, end: 20210407
  3. ETIZOLAM [Concomitant]
     Active Substance: ETIZOLAM
     Indication: Depression
     Route: 048
     Dates: start: 20190913
  4. QUETIAPINE [Concomitant]
     Active Substance: QUETIAPINE
     Indication: Insomnia
     Route: 048
     Dates: start: 20190913
  5. SENNOSIDES [Concomitant]
     Active Substance: SENNOSIDES
     Indication: Constipation
     Route: 048
     Dates: start: 20190913
  6. FLUNITRAZEPAM [Concomitant]
     Active Substance: FLUNITRAZEPAM
     Indication: Insomnia
     Route: 048
     Dates: start: 20190913
  7. AMITIZA [Concomitant]
     Active Substance: LUBIPROSTONE
     Indication: Constipation
     Route: 048
     Dates: start: 20190918
  8. VIDAZA [Concomitant]
     Active Substance: AZACITIDINE
     Indication: Acute myeloid leukaemia recurrent
     Route: 041
     Dates: start: 20190919, end: 20200804
  9. LUDIOMIL [Concomitant]
     Active Substance: MAPROTILINE HYDROCHLORIDE
     Indication: Depression
     Route: 048
     Dates: start: 20200410
  10. CYTARABINE [Concomitant]
     Active Substance: CYTARABINE
     Indication: Acute myeloid leukaemia recurrent
     Route: 041
     Dates: start: 20200902, end: 20201003
  11. DAUNORUBICIN [Concomitant]
     Active Substance: DAUNORUBICIN
     Indication: Acute myeloid leukaemia recurrent
     Route: 041
     Dates: start: 20200902, end: 20200903
  12. MITOXANTRONE [Concomitant]
     Active Substance: MITOXANTRONE HYDROCHLORIDE
     Indication: Acute myeloid leukaemia recurrent
     Route: 041
     Dates: start: 20201001, end: 20201003
  13. ETOPOSIDE [Concomitant]
     Active Substance: ETOPOSIDE
     Indication: Acute myeloid leukaemia recurrent
     Route: 041
     Dates: start: 20201001, end: 20201003

REACTIONS (4)
  - Platelet-derived growth factor receptor gene mutation [Fatal]
  - Acute myeloid leukaemia [Fatal]
  - Myelofibrosis [Not Recovered/Not Resolved]
  - Pancytopenia [Not Recovered/Not Resolved]

NARRATIVE: CASE EVENT DATE: 20210331
